FAERS Safety Report 11362195 (Version 1)
Quarter: 2015Q3

REPORT INFORMATION
  Report Type: Spontaneous
  Country: DE (occurrence: DE)
  Receive Date: 20150810
  Receipt Date: 20150810
  Transmission Date: 20151125
  Serious: Yes (Hospitalization)
  Sender: FDA-Public Use
  Company Number: DE-TEVA-576284GER

PATIENT
  Age: 57 Year
  Sex: Female

DRUGS (1)
  1. COTRIM FORTE RATIOPHARM 960 MG TABLETTEN [Suspect]
     Active Substance: SULFAMETHOXAZOLE\TRIMETHOPRIM
     Indication: URINARY TRACT INFECTION
     Dosage: 2 DOSAGE FORMS DAILY; 1 DF = SULFAMETHOXAZOLE 800 MG PLUS TRIMETHOPRIM 160 MG
     Route: 048
     Dates: start: 20150707, end: 20150717

REACTIONS (4)
  - Visual acuity reduced [Unknown]
  - Paraesthesia [Unknown]
  - Dyspnoea [Unknown]
  - Aphasia [Unknown]

NARRATIVE: CASE EVENT DATE: 201507
